FAERS Safety Report 13658421 (Version 2)
Quarter: 2017Q3

REPORT INFORMATION
  Report Type: Report from Study
  Country: CA (occurrence: CA)
  Receive Date: 20170616
  Receipt Date: 20170707
  Transmission Date: 20171127
  Serious: Yes (Other)
  Sender: FDA-Public Use
  Company Number: CA-AMGEN-CANSL2017013543

PATIENT
  Age: 58 Year
  Sex: Female
  Weight: 65 kg

DRUGS (12)
  1. PROLIA [Suspect]
     Active Substance: DENOSUMAB
     Dosage: UNK
     Route: 058
     Dates: start: 20160614
  2. LORAZEPAM. [Concomitant]
     Active Substance: LORAZEPAM
     Dosage: UNK UNK, AS NECESSARY
  3. MULTIVITAMIN [Concomitant]
     Active Substance: VITAMINS
  4. PROLIA [Suspect]
     Active Substance: DENOSUMAB
     Indication: OSTEOPOROSIS POSTMENOPAUSAL
     Dosage: 60 MG/ML, Q6MO
     Route: 058
     Dates: start: 20150113
  5. LEVOTHYROXINE. [Concomitant]
     Active Substance: LEVOTHYROXINE
  6. VITAMIN D [Concomitant]
     Active Substance: CHOLECALCIFEROL
  7. ESTRING [Concomitant]
     Active Substance: ESTRADIOL
     Dosage: 2 MG, Q3MO
  8. IMOVANE [Concomitant]
     Active Substance: ZOPICLONE
     Dosage: UNK UNK, QD (EVERY NIGHT)
     Route: 048
  9. SYNTHROID [Concomitant]
     Active Substance: LEVOTHYROXINE SODIUM
     Indication: HYPOTHYROIDISM
     Dosage: 50 MUG, QD
     Route: 048
  10. PROLIA [Suspect]
     Active Substance: DENOSUMAB
     Dosage: 60 MG/ML, Q6MO
     Route: 058
     Dates: start: 20150706
  11. ATIVAN [Concomitant]
     Active Substance: LORAZEPAM
     Indication: ANXIETY
     Dosage: 1 MG, AS NECESSARY
     Route: 048
  12. PROLIA [Suspect]
     Active Substance: DENOSUMAB
     Dosage: UNK
     Route: 058
     Dates: start: 20170123

REACTIONS (9)
  - Productive cough [Recovered/Resolved]
  - Precancerous skin lesion [Unknown]
  - Upper respiratory tract infection [Unknown]
  - Musculoskeletal pain [Not Recovered/Not Resolved]
  - Animal bite [Unknown]
  - Bone pain [Not Recovered/Not Resolved]
  - Erythema [Unknown]
  - Arthralgia [Not Recovered/Not Resolved]
  - Cellulitis [Unknown]

NARRATIVE: CASE EVENT DATE: 2016
